FAERS Safety Report 14835558 (Version 1)
Quarter: 2018Q2

REPORT INFORMATION
  Report Type: Report from Study
  Country: None (occurrence: JP)
  Receive Date: 20180502
  Receipt Date: 20180502
  Transmission Date: 20180711
  Serious: Yes (Hospitalization)
  Sender: FDA-Public Use
  Company Number: JP-ABBVIE-18S-087-2340568-00

PATIENT
  Age: 67 Year
  Sex: Male
  Weight: 61 kg

DRUGS (15)
  1. SENNA LEAF/SENNA POD [Concomitant]
     Indication: CONSTIPATION
     Route: 048
     Dates: start: 20110307
  2. NAPROXEN. [Concomitant]
     Active Substance: NAPROXEN
     Indication: PERIODONTITIS
     Route: 048
     Dates: start: 20140512, end: 20140515
  3. TAURINE [Concomitant]
     Active Substance: TAURINE
     Indication: HEPATITIS
     Route: 048
     Dates: start: 20040119, end: 20140725
  4. CEFCAPENE PIVOXIL HYDROCHLORIDE HYDRATE [Concomitant]
     Active Substance: CEFCAPENE PIVOXIL HYDROCHLORIDE HYDRATE
     Indication: PERIODONTITIS
     Route: 048
     Dates: start: 20140512, end: 20140515
  5. LOXOPROFEN SODIUM HYDRATE [Concomitant]
     Active Substance: LOXOPROFEN SODIUM DIHYDRATE
     Indication: FOLLICULITIS
     Dosage: Q.S., PRN
     Route: 062
     Dates: start: 20140523, end: 20140530
  6. ZOLPIDEM TARTRATE. [Concomitant]
     Active Substance: ZOLPIDEM TARTRATE
     Indication: INSOMNIA
     Route: 048
     Dates: start: 20110307, end: 20141226
  7. LIDOCAINE HYDROCHLORIDE/ADRENALINE BITARTRATE [Concomitant]
     Indication: PERIODONTITIS
     Dosage: PRN
     Route: 061
     Dates: start: 20140512, end: 20140512
  8. TOCOPHEROL NICOTINATE [Concomitant]
     Active Substance: TOCOPHERYL NICOTINATE, D-.ALPHA.
     Indication: HEPATITIS
     Route: 048
     Dates: start: 20040119, end: 20140725
  9. LORATADINE. [Concomitant]
     Active Substance: LORATADINE
     Indication: FOLLICULITIS
     Dosage: PRN
     Route: 048
     Dates: start: 20140523, end: 20140530
  10. CEFDINIR. [Concomitant]
     Active Substance: CEFDINIR
     Indication: CELLULITIS
     Route: 048
     Dates: start: 20140523, end: 20140530
  11. DICLOFENAC SODIUM. [Concomitant]
     Active Substance: DICLOFENAC SODIUM
     Indication: PERIODONTITIS
     Dosage: PRN
     Route: 048
     Dates: start: 20140512, end: 20140515
  12. CHLORAMHENICOL [Concomitant]
     Active Substance: CHLORAMPHENICOL
     Indication: FOLLICULITIS
     Dosage: PRN
     Route: 061
     Dates: start: 20140523, end: 20140530
  13. URSODEOXYCHOLIC ACID [Concomitant]
     Active Substance: URSODIOL
     Indication: HEPATITIS
     Route: 048
     Dates: start: 20040119, end: 20140725
  14. VIEKIRAX [Suspect]
     Active Substance: OMBITASVIR\PARITAPREVIR\RITONAVIR
     Indication: CHRONIC HEPATITIS C
     Route: 048
     Dates: start: 20140418, end: 20140710
  15. UBIDECARENONE [Concomitant]
     Active Substance: UBIDECARENONE
     Indication: HEPATITIS
     Route: 048
     Dates: start: 20040119, end: 20140725

REACTIONS (1)
  - Hepatic cancer [Recovered/Resolved]

NARRATIVE: CASE EVENT DATE: 20170829
